FAERS Safety Report 5006292-2 (Version None)
Quarter: 2006Q2

REPORT INFORMATION
  Report Type: 
  Country: None (occurrence: None)
  Receive Date: 20060519
  Receipt Date: 20060516
  Transmission Date: 20061013
  Serious: Yes (Hospitalization)
  Sender: FDA-Public Use
  Company Number: FR-SOLVAY-00206001602

PATIENT
  Age: 22 Year
  Sex: Female

DRUGS (6)
  1. UTROGESTAN [Suspect]
     Indication: PREMATURE MENOPAUSE
     Dosage: DAILY DOSE:  UNKNOWN
     Route: 048
     Dates: start: 20060401
  2. ESTROGEL [Suspect]
     Indication: PREMATURE MENOPAUSE
     Dosage: DAILY DOSE:  UNKNOWN
     Route: 062
     Dates: start: 20060401
  3. ASPIRIN [Suspect]
     Indication: ILL-DEFINED DISORDER
     Dosage: DAILY DOSE:  UNKNOWN
     Route: 048
     Dates: start: 20060407, end: 20060412
  4. ORACILLINE [Suspect]
     Indication: ILL-DEFINED DISORDER
     Dosage: DAILY DOSE:  UNKNOWN
     Route: 048
  5. ZECLAR [Suspect]
     Indication: ILL-DEFINED DISORDER
     Dosage: DAILY DOSE:  UNKNOWN
     Route: 048
     Dates: start: 20060407, end: 20060412
  6. VALACYCLOVIR HCL [Suspect]
     Indication: ILL-DEFINED DISORDER
     Dosage: DAILY DOSE:  UNKNOWN
     Route: 048

REACTIONS (1)
  - PAIN IN EXTREMITY [None]
